FAERS Safety Report 4402064-8 (Version None)
Quarter: 2004Q3

REPORT INFORMATION
  Report Type: 
  Country: None (occurrence: None)
  Receive Date: 20040719
  Receipt Date: 20040719
  Transmission Date: 20050211
  Serious: Yes (Death, Hospitalization)
  Sender: FDA-Public Use
  Company Number: None

PATIENT
  Age: 42 Year
  Sex: Female
  Weight: 58.5 kg

DRUGS (9)
  1. IRINOTECAN PHARMACIA/PFIZER [Suspect]
     Indication: NON-SMALL CELL LUNG CANCER
     Dosage: 100MG/M2 D 1 AND 8 INTRAVENOUS
     Route: 042
     Dates: start: 20040428, end: 20040624
  2. CAPECITABINE ROCHE [Suspect]
     Indication: NON-SMALL CELL LUNG CANCER
     Dosage: 1500 MG/M2 D 2-15 ORAL
     Route: 048
     Dates: start: 20040617, end: 20040630
  3. DILANTIN [Concomitant]
  4. FENTANYL [Concomitant]
  5. OXYCODONE HCL [Concomitant]
  6. NEXIUM [Concomitant]
  7. AMBIEN [Concomitant]
  8. MEGACE [Concomitant]
  9. ESTROSTEP [Concomitant]

REACTIONS (11)
  - ABDOMINAL PAIN [None]
  - ACUTE ABDOMEN [None]
  - CONVULSION [None]
  - EXTRADURAL ABSCESS [None]
  - ILEUS [None]
  - METASTASES TO CENTRAL NERVOUS SYSTEM [None]
  - PAIN [None]
  - PARALYSIS [None]
  - PSYCHOMOTOR HYPERACTIVITY [None]
  - PYREXIA [None]
  - SPINAL CORD COMPRESSION [None]
